FAERS Safety Report 6232228-2 (Version None)
Quarter: 2009Q2

REPORT INFORMATION
  Report Type: 
  Country: None (occurrence: None)
  Receive Date: 20090616
  Receipt Date: 20090616
  Transmission Date: 20091009
  Serious: No
  Sender: FDA-Public Use
  Company Number: None

PATIENT
  Sex: Female
  Weight: 98.8842 kg

DRUGS (2)
  1. GLYBURIDE [Suspect]
     Indication: HYPERLIPIDAEMIA
     Dosage: GLYBURIDE 1.25MG BID ORAL
     Route: 048
     Dates: start: 20080801, end: 20090301
  2. GLYBURIDE [Suspect]
     Indication: TYPE 2 DIABETES MELLITUS
     Dosage: GLYBURIDE 1.25MG BID ORAL
     Route: 048
     Dates: start: 20080801, end: 20090301

REACTIONS (1)
  - MUSCLE SPASMS [None]
